FAERS Safety Report 14425843 (Version 2)
Quarter: 2018Q1

REPORT INFORMATION
  Report Type: Spontaneous
  Country: RO (occurrence: RO)
  Receive Date: 20180123
  Receipt Date: 20180212
  Transmission Date: 20180509
  Serious: Yes (Death, Hospitalization)
  Sender: FDA-Public Use
  Company Number: RO-PFIZER INC-2018029241

PATIENT
  Age: 69 Year
  Sex: Female
  Weight: 55 kg

DRUGS (9)
  1. NICERGOLINE [Concomitant]
     Active Substance: NICERGOLINE
     Dosage: 300 MG, 1X/DAY (MORNING)
  2. EUTHYROX [Concomitant]
     Active Substance: LEVOTHYROXINE SODIUM
     Dosage: 50 UG, 1X/DAY (IN THE MORNING)
  3. EGILOK [Concomitant]
     Active Substance: METOPROLOL TARTRATE
     Dosage: 50 MG, 1X/DAY (MORNING)
  4. TENOX /00393701/ [Concomitant]
     Dosage: UNK, 2X/DAY (MORNING AND EVENING)
  5. THIOSSEN [Concomitant]
     Active Substance: THIOCTIC ACID
     Dosage: 600 MG, 1X/DAY (MORNING)
  6. TRITTICO [Concomitant]
     Active Substance: TRAZODONE HYDROCHLORIDE
     Dosage: 150 MG, 1X/DAY (1/3 TABLET IN THE EVENING)
  7. ALLOPURINOL. [Concomitant]
     Active Substance: ALLOPURINOL
     Dosage: UNK, 3X/DAY (MORNING, MIDDAY AND EVENING)
  8. MEDROL [Concomitant]
     Active Substance: METHYLPREDNISOLONE
     Dosage: UNK, 1X/DAY (16 UNK; MORNING)
  9. SUTENT [Suspect]
     Active Substance: SUNITINIB MALATE
     Indication: RENAL CANCER METASTATIC
     Dosage: 50 MG, CYCLIC (28 DAYS ON TREATMENT WITH 14 DAYS PAUSE)
     Dates: start: 201511

REACTIONS (5)
  - Encephalopathy [Unknown]
  - Senile dementia [Unknown]
  - Cognitive disorder [Unknown]
  - Organic brain syndrome [Unknown]
  - Cardio-respiratory arrest [Fatal]

NARRATIVE: CASE EVENT DATE: 201712
